FAERS Safety Report 8217471-5 (Version None)
Quarter: 2012Q1

REPORT INFORMATION
  Report Type: 
  Country: None (occurrence: None)
  Receive Date: 20120301
  Receipt Date: 20110929
  Transmission Date: 20120608
  Serious: Yes (Other)
  Sender: FDA-Public Use
  Company Number: 303089USA

PATIENT
  Age: 46 Year
  Sex: Female

DRUGS (2)
  1. METFORMIN HCL [Suspect]
     Indication: DIABETES MELLITUS
     Dosage: 2000 MG (1000 MG, 2 IN 1 D); 1000 MG (500 MG, 2 IN 1 D)
     Dates: start: 20060101
  2. METFORMIN HCL [Suspect]
     Indication: DIABETES MELLITUS
     Dosage: 2000 MG (1000 MG, 2 IN 1 D); 1000 MG (500 MG, 2 IN 1 D)
     Dates: start: 20110912

REACTIONS (9)
  - PRURITUS [None]
  - RASH GENERALISED [None]
  - PHARYNGEAL OEDEMA [None]
  - THROMBOSIS [None]
  - DYSPNOEA [None]
  - SWELLING [None]
  - MENORRHAGIA [None]
  - ERYTHEMA [None]
  - GASTROOESOPHAGEAL REFLUX DISEASE [None]
